FAERS Safety Report 9157929 (Version 7)
Quarter: 2019Q4

REPORT INFORMATION
  Report Type: Report from Study
  Country: BE (occurrence: BE)
  Receive Date: 20130312
  Receipt Date: 20191125
  Transmission Date: 20200122
  Serious: Yes (Hospitalization)
  Sender: FDA-Public Use
  Company Number: BE-ROCHE-1199271

PATIENT
  Age: 49 Year
  Sex: Female

DRUGS (81)
  1. DICLOFENAC [Concomitant]
     Active Substance: DICLOFENAC
     Route: 065
     Dates: start: 20160614
  2. CITALOPRAM [Concomitant]
     Active Substance: CITALOPRAM HYDROBROMIDE
     Route: 065
     Dates: start: 20130126
  3. DAFALGAN [Concomitant]
     Active Substance: ACETAMINOPHEN
     Route: 065
     Dates: start: 20130204, end: 20130304
  4. IMODIUM [Concomitant]
     Active Substance: LOPERAMIDE HYDROCHLORIDE
     Route: 065
     Dates: start: 20150116, end: 20150118
  5. DERMOVATE [Concomitant]
     Active Substance: CLOBETASOL
     Route: 065
     Dates: start: 20131102, end: 20131104
  6. TEMESTA [LORAZEPAM] [Concomitant]
     Active Substance: LORAZEPAM
     Route: 065
     Dates: start: 20161220, end: 20170919
  7. DAFALGAN [Concomitant]
     Active Substance: ACETAMINOPHEN
     Route: 065
     Dates: start: 20150812, end: 20150812
  8. LOPERAMIDE [Concomitant]
     Active Substance: LOPERAMIDE
     Route: 065
     Dates: start: 20160822, end: 20160822
  9. MOTILIUM [Concomitant]
     Active Substance: DOMPERIDONE
  10. INJECTAFER [Concomitant]
     Active Substance: FERRIC CARBOXYMALTOSE
     Route: 065
     Dates: start: 20180327, end: 20180327
  11. PERTUZUMAB. [Suspect]
     Active Substance: PERTUZUMAB
     Indication: HER-2 POSITIVE BREAST CANCER
     Route: 042
     Dates: start: 20130204, end: 20130204
  12. TAXOL [Suspect]
     Active Substance: PACLITAXEL
     Route: 042
     Dates: start: 20130312
  13. WELLBUTRIN [Concomitant]
     Active Substance: BUPROPION HYDROCHLORIDE
     Route: 065
     Dates: start: 20130118
  14. DICLOFENAC [Concomitant]
     Active Substance: DICLOFENAC
     Route: 065
     Dates: start: 20120901
  15. DICLOFENAC [Concomitant]
     Active Substance: DICLOFENAC
     Route: 065
     Dates: start: 20150407, end: 20150503
  16. DUPHALAC [Concomitant]
     Active Substance: LACTULOSE
     Route: 065
     Dates: start: 20121125
  17. IMODIUM [Concomitant]
     Active Substance: LOPERAMIDE HYDROCHLORIDE
     Route: 065
     Dates: start: 20130210
  18. CLAVUCID [AMOXICILLIN TRIHYDRATE;CLAVULANATE POTASSIUM] [Concomitant]
     Route: 065
     Dates: start: 20140502, end: 20140513
  19. CHLORAMINE PURA [Concomitant]
     Route: 065
     Dates: start: 20140129
  20. STAPHYCID [Concomitant]
     Route: 065
     Dates: start: 20140607, end: 20140617
  21. FEMARA [Concomitant]
     Active Substance: LETROZOLE
     Route: 065
     Dates: start: 20150210
  22. MOMETASONE [Concomitant]
     Active Substance: MOMETASONE
     Dosage: 50 MCG
     Route: 065
     Dates: start: 20190409
  23. TRASTUZUMAB. [Suspect]
     Active Substance: TRASTUZUMAB
     Dosage: LAST DOSE PRIOR TO SAE: 26/FEB/2013 (6 MG/KG AS PER PROTOCOL)
     Route: 042
     Dates: start: 20130226
  24. XANAX [Concomitant]
     Active Substance: ALPRAZOLAM
     Route: 065
     Dates: start: 20130204, end: 20141027
  25. XANAX [Concomitant]
     Active Substance: ALPRAZOLAM
     Route: 065
     Dates: start: 20170601
  26. CITALOPRAM [Concomitant]
     Active Substance: CITALOPRAM HYDROBROMIDE
     Route: 065
     Dates: start: 20130126
  27. SIFROL [Concomitant]
     Active Substance: PRAMIPEXOLE
     Route: 065
     Dates: start: 201703, end: 20170310
  28. VALIUM [Concomitant]
     Active Substance: DIAZEPAM
     Route: 065
     Dates: start: 20150812, end: 20150812
  29. LOSFERRON [Concomitant]
     Route: 065
     Dates: start: 20150813, end: 20150912
  30. ISOBETADINE [Concomitant]
     Route: 065
     Dates: start: 20171204, end: 20180102
  31. OXYNORM [Concomitant]
     Active Substance: OXYCODONE HYDROCHLORIDE
     Route: 065
     Dates: start: 20120920, end: 20140513
  32. OXYNORM [Concomitant]
     Active Substance: OXYCODONE HYDROCHLORIDE
     Route: 065
     Dates: start: 20160810, end: 20180124
  33. OXYNORM [Concomitant]
     Active Substance: OXYCODONE HYDROCHLORIDE
     Route: 065
     Dates: start: 20181024
  34. XGEVA [Concomitant]
     Active Substance: DENOSUMAB
     Route: 065
     Dates: start: 20120703
  35. BETNELAN [BETAMETHASONE] [Concomitant]
     Route: 065
     Dates: start: 20140422
  36. AUGMENTIN [Concomitant]
     Active Substance: AMOXICILLIN\CLAVULANATE POTASSIUM
     Route: 065
     Dates: start: 20150813, end: 20150823
  37. FUCICORT LIPID [Concomitant]
     Route: 065
     Dates: start: 20171025, end: 20171204
  38. TRASTUZUMAB. [Suspect]
     Active Substance: TRASTUZUMAB
     Indication: HER-2 POSITIVE BREAST CANCER
     Route: 042
     Dates: start: 20130205, end: 20130205
  39. TAXOL [Suspect]
     Active Substance: PACLITAXEL
     Indication: HER-2 POSITIVE BREAST CANCER
     Dosage: LAST DOSE PRIOR TO SAE: 26/FEB/2013. DOSE INTERRUPTED DUE TO SAE.
     Route: 042
     Dates: start: 20130205, end: 20130305
  40. OXYNORM [Concomitant]
     Active Substance: OXYCODONE HYDROCHLORIDE
     Route: 065
     Dates: start: 20160806, end: 20160806
  41. SIFROL [Concomitant]
     Active Substance: PRAMIPEXOLE
     Route: 065
     Dates: start: 20150812, end: 20150812
  42. TEMESTA [LORAZEPAM] [Concomitant]
     Active Substance: LORAZEPAM
     Route: 065
     Dates: start: 20150812, end: 20150812
  43. NASONEX [Concomitant]
     Active Substance: MOMETASONE FUROATE
     Dosage: 1 UNIT
     Route: 065
     Dates: start: 20150812
  44. PERTUZUMAB. [Suspect]
     Active Substance: PERTUZUMAB
     Dosage: LAST DOSE PRIOR TO SAE: 26/FEB/2013
     Route: 042
     Dates: start: 20130226
  45. DICLOFENAC [Concomitant]
     Active Substance: DICLOFENAC
     Route: 065
     Dates: start: 20160926, end: 20170314
  46. DICLOFENAC [Concomitant]
     Active Substance: DICLOFENAC
     Route: 065
     Dates: start: 20170314, end: 20180417
  47. ZOLADEX [Concomitant]
     Active Substance: GOSERELIN ACETATE
     Route: 065
     Dates: start: 20120703, end: 20130115
  48. PARACETAMOL [Concomitant]
     Active Substance: ACETAMINOPHEN
     Route: 065
     Dates: start: 20130304
  49. CLAVUCID [AMOXICILLIN TRIHYDRATE;CLAVULANATE POTASSIUM] [Concomitant]
     Route: 065
     Dates: start: 20140129, end: 20140202
  50. FUCIDIN H [FUSIDIC ACID;HYDROCORTISONE ACETATE] [Concomitant]
     Route: 065
     Dates: start: 20140129, end: 20140414
  51. FUCIDIN H [FUSIDIC ACID;HYDROCORTISONE ACETATE] [Concomitant]
     Dosage: 1 APPLICATION PRN
     Route: 065
     Dates: start: 201406
  52. BETNELAN [BETAMETHASONE] [Concomitant]
     Dosage: 1 APPLICATION
     Route: 065
     Dates: start: 20140804
  53. SOLU-MEDROL [Concomitant]
     Active Substance: METHYLPREDNISOLONE SODIUM SUCCINATE
     Route: 065
     Dates: start: 20130409, end: 20130409
  54. STAPHYCID [Concomitant]
     Route: 065
     Dates: start: 20140324, end: 20140328
  55. CONTRAMAL [Concomitant]
     Active Substance: TRAMADOL HYDROCHLORIDE
     Route: 065
     Dates: start: 20120920, end: 20130330
  56. UREUM [Concomitant]
     Route: 065
     Dates: start: 20181113
  57. BRONCHOSEDAL CODEINE [Concomitant]
     Active Substance: CODEINE PHOSPHATE
     Route: 065
     Dates: start: 20120126, end: 20130204
  58. TRANSTEC [Concomitant]
     Active Substance: BUPRENORPHINE
     Route: 065
     Dates: start: 20121120, end: 20131101
  59. OMEPRAZOLE. [Concomitant]
     Active Substance: OMEPRAZOLE
     Route: 065
     Dates: start: 20130118, end: 20190521
  60. OXYNORM [Concomitant]
     Active Substance: OXYCODONE HYDROCHLORIDE
     Route: 065
     Dates: start: 20170410, end: 20170413
  61. FENTANYL. [Concomitant]
     Active Substance: FENTANYL
     Route: 065
     Dates: start: 20131102
  62. MAGNESIUM [Concomitant]
     Active Substance: MAGNESIUM
     Dosage: 1 TABLET
     Route: 065
     Dates: start: 20141120, end: 20141231
  63. DUROGESIC [Concomitant]
     Active Substance: FENTANYL
     Dosage: 75 UG
     Route: 065
     Dates: start: 20140623
  64. CETIRIZINE [Concomitant]
     Active Substance: CETIRIZINE HYDROCHLORIDE
     Route: 065
     Dates: start: 20150812, end: 20160910
  65. NACL [Concomitant]
     Active Substance: SODIUM CHLORIDE
     Route: 065
     Dates: start: 20130305, end: 20130309
  66. DICLOFENAC [Concomitant]
     Active Substance: DICLOFENAC
     Route: 065
     Dates: start: 20160805, end: 20160926
  67. DICLOFENAC [Concomitant]
     Active Substance: DICLOFENAC
     Route: 065
     Dates: start: 20160509, end: 20160614
  68. DAFALGAN [Concomitant]
     Active Substance: ACETAMINOPHEN
     Route: 065
     Dates: start: 20120901
  69. MEDROL [Concomitant]
     Active Substance: METHYLPREDNISOLONE
     Route: 065
     Dates: start: 20120117, end: 20130121
  70. XGEVA [Concomitant]
     Active Substance: DENOSUMAB
     Route: 065
     Dates: start: 20130212, end: 20130212
  71. XGEVA [Concomitant]
     Active Substance: DENOSUMAB
     Route: 065
     Dates: start: 20150210, end: 20150413
  72. PARACETAMOL [Concomitant]
     Active Substance: ACETAMINOPHEN
     Route: 065
     Dates: start: 20130204, end: 20130205
  73. DEXAMETHASONE. [Concomitant]
     Active Substance: DEXAMETHASONE
     Route: 065
     Dates: start: 20130204, end: 20130604
  74. FENISTIL [Concomitant]
     Active Substance: DIMETHINDENE
     Route: 065
     Dates: start: 20130205, end: 20130604
  75. TARIVID [OFLOXACIN] [Concomitant]
     Route: 065
     Dates: start: 20131215, end: 20140106
  76. VOLTAREN [Concomitant]
     Active Substance: DICLOFENAC SODIUM
     Route: 065
     Dates: start: 20120901
  77. POTASSIUM [Concomitant]
     Active Substance: POTASSIUM
     Dosage: 1 TABLET
     Route: 065
     Dates: start: 20141120, end: 20141231
  78. DUROGESIC [Concomitant]
     Active Substance: FENTANYL
     Dosage: 50 MCG
     Route: 065
     Dates: start: 20150414, end: 20160905
  79. SIFROL [Concomitant]
     Active Substance: PRAMIPEXOLE
     Route: 065
     Dates: start: 20190319
  80. AVELOX [Concomitant]
     Active Substance: MOXIFLOXACIN HYDROCHLORIDE
     Route: 065
     Dates: start: 20160402, end: 20160409
  81. NILSTAT [NYSTATIN] [Concomitant]
     Route: 065
     Dates: start: 201708, end: 20170801

REACTIONS (1)
  - Dehydration [Recovered/Resolved]

NARRATIVE: CASE EVENT DATE: 20130305
